FAERS Safety Report 6594849-7 (Version None)
Quarter: 2010Q1

REPORT INFORMATION
  Report Type: 
  Country: None (occurrence: None)
  Receive Date: 20100222
  Receipt Date: 20100105
  Transmission Date: 20100710
  Serious: Yes (Death)
  Sender: FDA-Public Use
  Company Number: US-TYCO HEALTHCARE/MALLINCKRODT-T201000175

PATIENT
  Age: 24 Year
  Sex: Male

DRUGS (3)
  1. ACETAMINOPHEN AND HYDROCODONE BITARTRATE [Suspect]
     Dosage: UNK
     Route: 048
  2. METHADOSE [Suspect]
     Dosage: UNK
     Route: 048
  3. ACETAMINOPHEN W/DIPHENHYDRAMINE HYDROCHLORIDE [Suspect]
     Route: 048

REACTIONS (1)
  - COMPLETED SUICIDE [None]
